FAERS Safety Report 7010619-X (Version None)
Quarter: 2010Q3

REPORT INFORMATION
  Report Type: 
  Country: None (occurrence: None)
  Receive Date: 20100909
  Receipt Date: 20100514
  Transmission Date: 20110219
  Serious: No
  Sender: FDA-Public Use
  Company Number: 2010SP027151

PATIENT
  Age: 34 Year
  Sex: Female

DRUGS (6)
  1. SAPHRIS [Suspect]
     Indication: SCHIZOAFFECTIVE DISORDER
     Dosage: 10 MG; BID; SL
     Route: 060
     Dates: start: 20100328
  2. CYMBALTA [Concomitant]
  3. REMERON [Concomitant]
  4. NEURONTIN [Concomitant]
  5. KLONOPIN [Concomitant]
  6. GUANFACINE HYDROCHLORIDE [Concomitant]

REACTIONS (2)
  - PARAESTHESIA ORAL [None]
  - PAROTID GLAND ENLARGEMENT [None]
